FAERS Safety Report 14543456 (Version 2)
Quarter: 2018Q1

REPORT INFORMATION
  Report Type: Spontaneous
  Country: US (occurrence: US)
  Receive Date: 20180216
  Receipt Date: 20180216
  Transmission Date: 20180509
  Serious: Yes (Hospitalization, Other)
  Sender: FDA-Public Use
  Company Number: US-TARO-2018TAR00108

PATIENT
  Sex: Female
  Weight: 93.42 kg

DRUGS (10)
  1. FLUOROURACIL TOPICAL CREAM USP 5% [Suspect]
     Active Substance: FLUOROURACIL
     Indication: SKIN CANCER
     Dosage: UNK
     Route: 061
  2. LEVOTHYROXINE. [Concomitant]
     Active Substance: LEVOTHYROXINE
  3. FLUOROURACIL TOPICAL CREAM USP 5% [Suspect]
     Active Substance: FLUOROURACIL
     Dosage: UNK
     Route: 061
  4. VITAMIN C [Concomitant]
     Active Substance: ASCORBIC ACID
  5. TOPIRAMATE. [Concomitant]
     Active Substance: TOPIRAMATE
  6. LOVASTATIN. [Concomitant]
     Active Substance: LOVASTATIN
  7. MULTIVITAMIN [Concomitant]
     Active Substance: VITAMINS
  8. ADVAIR HFA [Concomitant]
     Active Substance: FLUTICASONE PROPIONATE\SALMETEROL XINAFOATE
  9. FLUOROURACIL TOPICAL CREAM USP 5% [Suspect]
     Active Substance: FLUOROURACIL
     Dosage: UNK, 2X/DAY
     Route: 061
     Dates: start: 2013, end: 2013
  10. VENTOLIN [Concomitant]
     Active Substance: ALBUTEROL SULFATE

REACTIONS (6)
  - Radiation injury [Recovered/Resolved]
  - Application site erythema [Recovered/Resolved]
  - Post procedural infection [Recovered/Resolved]
  - Application site pruritus [Recovered/Resolved]
  - Breast cancer recurrent [Recovered/Resolved]
  - Memory impairment [Not Recovered/Not Resolved]

NARRATIVE: CASE EVENT DATE: 2013
